FAERS Safety Report 10274088 (Version 3)
Quarter: 2014Q3

REPORT INFORMATION
  Report Type: Spontaneous
  Country: US (occurrence: US)
  Receive Date: 20140702
  Receipt Date: 20140820
  Transmission Date: 20150326
  Serious: Yes (Other)
  Sender: FDA-Public Use
  Company Number: US-ROXANE LABORATORIES, INC.-2014-RO-01005RO

PATIENT
  Age: 52 Year
  Sex: Male
  Weight: 100 kg

DRUGS (4)
  1. VELCADE [Suspect]
     Active Substance: BORTEZOMIB
     Dosage: DAY 1, 4, 8, 11
     Route: 058
     Dates: start: 20140103
  2. DEXAMETHASONE. [Suspect]
     Active Substance: DEXAMETHASONE
     Indication: PLASMA CELL MYELOMA
     Dosage: DAY 1-4, 12-14 OF EACH 21 DAY CYCLE
     Route: 048
     Dates: start: 20140103
  3. VELCADE [Suspect]
     Active Substance: BORTEZOMIB
     Indication: PLASMA CELL MYELOMA
     Dosage: DAY 1,4,8,11 PER 21 DAY CYCLE
     Route: 058
     Dates: start: 20140103
  4. DEXAMETHASONE. [Suspect]
     Active Substance: DEXAMETHASONE
     Dosage: DAY 1-4, 9-12
     Route: 048
     Dates: start: 20140103

REACTIONS (3)
  - Hyperglycaemia [Recovered/Resolved]
  - Respiratory syncytial virus test positive [Unknown]
  - Lung infiltration [Recovered/Resolved]

NARRATIVE: CASE EVENT DATE: 20140110
